FAERS Safety Report 9246006 (Version 3)
Quarter: 2013Q2

REPORT INFORMATION
  Report Type: Spontaneous
  Country: US (occurrence: US)
  Receive Date: 20130422
  Receipt Date: 20130522
  Transmission Date: 20140414
  Serious: Yes (Hospitalization)
  Sender: FDA-Public Use
  Company Number: US-GILEAD-2013-0073841

PATIENT
  Age: 67 Year
  Sex: Female

DRUGS (3)
  1. LETAIRIS [Suspect]
     Indication: PULMONARY ARTERIAL HYPERTENSION
     Dosage: 5 MG, UNK
     Route: 048
     Dates: start: 20110316, end: 20130503
  2. SILDENAFIL [Concomitant]
     Dosage: 40 MG, BID
  3. TYVASO [Concomitant]
     Dosage: 9 BREATHS, QID
     Route: 055

REACTIONS (3)
  - Haematochezia [Unknown]
  - Dyspnoea [Unknown]
  - Anaemia [Unknown]
